FAERS Safety Report 4951212-X (Version None)
Quarter: 2006Q1

REPORT INFORMATION
  Report Type: 
  Country: None (occurrence: None)
  Receive Date: 20060314
  Receipt Date: 20060306
  Transmission Date: 20060701
  Serious: Yes (Other)
  Sender: FDA-Public Use
  Company Number: 200611209BWH

PATIENT
  Age: 60 Year
  Sex: Male
  Weight: 78.9259 kg

DRUGS (4)
  1. NEXAVAR [Suspect]
     Indication: METASTATIC RENAL CELL CARCINOMA
     Dosage: 400 MG, BID, ORAL
     Route: 048
     Dates: start: 20060110, end: 20060221
  2. ISOSORBIDE [Concomitant]
  3. XANAX [Concomitant]
  4. ASPIRIN [Concomitant]

REACTIONS (11)
  - ALOPECIA [None]
  - ARRHYTHMIA [None]
  - BLISTER [None]
  - BLOOD GLUCOSE INCREASED [None]
  - BLOOD PRESSURE DIASTOLIC INCREASED [None]
  - BLOOD PRESSURE INCREASED [None]
  - DRY MOUTH [None]
  - HEART RATE INCREASED [None]
  - OEDEMA PERIPHERAL [None]
  - PRURITUS [None]
  - WEIGHT DECREASED [None]
